FAERS Safety Report 6950250-5 (Version None)
Quarter: 2010Q3

REPORT INFORMATION
  Report Type: 
  Country: None (occurrence: None)
  Receive Date: 20100828
  Receipt Date: 20100303
  Transmission Date: 20110219
  Serious: No
  Sender: FDA-Public Use
  Company Number: US-ABBOTT-10P-163-0623898-00

PATIENT
  Sex: Male
  Weight: 72.64 kg

DRUGS (3)
  1. NIASPAN [Suspect]
     Indication: HIGH DENSITY LIPOPROTEIN DECREASED
     Dates: start: 20100127, end: 20100131
  2. ASPIRIN [Concomitant]
     Indication: CARDIAC DISORDER
  3. DIOVAN [Concomitant]
     Indication: HYPERTENSION

REACTIONS (2)
  - GOUT [None]
  - PAIN IN EXTREMITY [None]
